FAERS Safety Report 8747436 (Version 2)
Quarter: 2012Q4

REPORT INFORMATION
  Report Type: 
  Country: DE (occurrence: DE)
  Receive Date: 20120827
  Receipt Date: 20121003
  Transmission Date: 20130627
  Serious: Yes (Other)
  Sender: FDA-Public Use
  Company Number: DE-ASTRAZENECA-2012SE58107

PATIENT
  Age: 23 Day
  Sex: Female

DRUGS (2)
  1. SEROQUEL PROLONG [Suspect]
     Indication: BIPOLAR DISORDER
     Route: 048
  2. MIRTAZAPIN [Suspect]
     Route: 048

REACTIONS (1)
  - Electrocardiogram QT prolonged [Recovering/Resolving]
